FAERS Safety Report 4806886-0 (Version None)
Quarter: 2005Q4

REPORT INFORMATION
  Report Type: 
  Country: None (occurrence: None)
  Receive Date: 20051019
  Receipt Date: 20051005
  Transmission Date: 20060501
  Serious: Yes (Hospitalization, Disabling)
  Sender: FDA-Public Use
  Company Number: EWC051046356

PATIENT
  Sex: Male

DRUGS (8)
  1. HUMULIN N [Suspect]
     Indication: DIABETES MELLITUS
     Dates: start: 20000101
  2. HUMULIN R [Suspect]
     Indication: DIABETES MELLITUS
     Dates: start: 20000101
  3. DOXIUM (CALCIUM DOBESILATE) [Concomitant]
  4. MAGNESIUM W/VITAMIN B6 [Concomitant]
  5. GLUCOBAY [Concomitant]
  6. MERCKFORMIN (METFORMIN HYDROCHLORIDE) [Concomitant]
  7. EDNYT (ENALAPRIL MALEATE) [Concomitant]
  8. TRENTAL [Concomitant]

REACTIONS (2)
  - LEG AMPUTATION [None]
  - PHANTOM PAIN [None]
